FAERS Safety Report 23662312 (Version 2)
Quarter: 2024Q1

REPORT INFORMATION
  Report Type: Report from Study
  Country: CA (occurrence: CA)
  Receive Date: 20240322
  Receipt Date: 20240329
  Transmission Date: 20240409
  Serious: Yes (Hospitalization)
  Sender: FDA-Public Use
  Company Number: CA-002147023-NVSC2024CA061411

PATIENT
  Age: 68 Year
  Sex: Female
  Weight: 66 kg

DRUGS (18)
  1. DOCETAXEL [Suspect]
     Active Substance: DOCETAXEL\DOCETAXEL ANHYDROUS
     Indication: Non-small cell lung cancer
     Dosage: 125 MG
     Route: 042
     Dates: start: 20231227
  2. ALENDRONATE [Concomitant]
     Active Substance: ALENDRONATE SODIUM
     Indication: Osteoporosis
     Dosage: UNK
     Route: 065
     Dates: start: 202307
  3. ATIVAN [Concomitant]
     Active Substance: LORAZEPAM
     Indication: Prophylaxis
     Dosage: UNK
     Route: 065
     Dates: start: 20240131
  4. ATORVASTATIN [Concomitant]
     Active Substance: ATORVASTATIN
     Indication: Blood cholesterol increased
     Dosage: UNK
     Route: 065
     Dates: start: 2013
  5. VITAMIN B12 [Concomitant]
     Active Substance: CYANOCOBALAMIN
     Indication: Hypovitaminosis
     Dosage: UNK
     Route: 065
     Dates: start: 20221220
  6. CALCIUM CARBONATE [Concomitant]
     Active Substance: CALCIUM CARBONATE
     Indication: Osteoporosis prophylaxis
     Dosage: UNK
     Route: 065
     Dates: start: 2015
  7. DEXAMETHASONE [Concomitant]
     Active Substance: DEXAMETHASONE
     Indication: Prophylaxis of nausea and vomiting
     Dosage: UNK
     Route: 065
     Dates: start: 20231226
  8. DOCUSATE SODIUM [Concomitant]
     Active Substance: DOCUSATE SODIUM
     Indication: Constipation
     Dosage: UNK
     Route: 065
     Dates: start: 20230104
  9. FOLIC ACID [Concomitant]
     Active Substance: FOLIC ACID
     Indication: Prophylaxis
     Dosage: UNK
     Route: 065
     Dates: start: 20230104
  10. LYSINE [Concomitant]
     Active Substance: LYSINE
     Indication: Prophylaxis
     Dosage: UNK
     Route: 065
     Dates: start: 20240124
  11. POLYETHYLENE GLYCOL 3350 [Concomitant]
     Active Substance: POLYETHYLENE GLYCOL 3350
     Indication: Constipation
     Dosage: UNK
     Route: 065
     Dates: start: 20230104
  12. MOMETASONE [Concomitant]
     Active Substance: MOMETASONE
     Indication: Chronic sinusitis
     Dosage: UNK
     Route: 065
     Dates: start: 2013
  13. NYSTATIN [Concomitant]
     Active Substance: NYSTATIN
     Indication: Mucosal inflammation
     Dosage: UNK
     Route: 065
     Dates: start: 20240124
  14. PROCHLORPERAZINE [Concomitant]
     Active Substance: PROCHLORPERAZINE
     Indication: Nausea
     Dosage: UNK
     Route: 065
     Dates: start: 20230104
  15. TRAZODONE [Concomitant]
     Active Substance: TRAZODONE HYDROCHLORIDE
     Indication: Insomnia
     Dosage: UNK
     Route: 065
     Dates: start: 2003
  16. TYLENOL [Concomitant]
     Active Substance: ACETAMINOPHEN
     Indication: Myalgia
     Dosage: UNK
     Route: 065
     Dates: start: 20240122
  17. VALACYCLOVIR [Concomitant]
     Active Substance: VALACYCLOVIR HYDROCHLORIDE
     Indication: Herpes simplex
     Dosage: UNK
     Route: 065
     Dates: start: 202307
  18. VITAMIN D [Concomitant]
     Active Substance: VITAMIN D NOS
     Indication: Osteoporosis prophylaxis
     Dosage: UNK
     Route: 065
     Dates: start: 2015

REACTIONS (1)
  - Brain oedema [Not Recovered/Not Resolved]

NARRATIVE: CASE EVENT DATE: 20240318
